FAERS Safety Report 7481154-X (Version None)
Quarter: 2011Q2

REPORT INFORMATION
  Report Type: 
  Country: None (occurrence: None)
  Receive Date: 20110516
  Receipt Date: 20110511
  Transmission Date: 20111010
  Serious: Yes (Life-Threatening)
  Sender: FDA-Public Use
  Company Number: PHHY2011US40130

PATIENT
  Age: 46 Year
  Sex: Male
  Weight: 110.66 kg

DRUGS (1)
  1. EXFORGE [Suspect]
     Indication: HYPERTENSION
     Dosage: 320MG VAL AND 10MG AMLO, QD
     Route: 048
     Dates: start: 20110207, end: 20110503

REACTIONS (3)
  - EAR PAIN [None]
  - PRURITUS [None]
  - OROPHARYNGEAL PAIN [None]
